FAERS Safety Report 18438302 (Version 2)
Quarter: 2020Q4

REPORT INFORMATION
  Report Type: Report from Study
  Country: None (occurrence: TW)
  Receive Date: 20201029
  Receipt Date: 20201102
  Transmission Date: 20210114
  Serious: Yes (Other)
  Sender: FDA-Public Use
  Company Number: TW-ABBVIE-20K-153-3625834-00

PATIENT
  Sex: Male

DRUGS (1)
  1. HUMIRA [Suspect]
     Active Substance: ADALIMUMAB
     Indication: PSORIASIS
     Route: 058
     Dates: start: 20180625, end: 20201021

REACTIONS (2)
  - Tuberculosis [Recovering/Resolving]
  - Bone giant cell tumour [Recovering/Resolving]

NARRATIVE: CASE EVENT DATE: 20201021
